FAERS Safety Report 14679843 (Version 1)
Quarter: 2018Q1

REPORT INFORMATION
  Report Type: Spontaneous
  Country: US (occurrence: US)
  Receive Date: 20180325
  Receipt Date: 20180325
  Transmission Date: 20180509
  Serious: Yes (Other)
  Sender: FDA-Public Use
  Company Number: None

PATIENT
  Age: 59 Year
  Sex: Male
  Weight: 81 kg

DRUGS (1)
  1. ROPINEROLE [Suspect]
     Active Substance: ROPINIROLE
     Indication: RESTLESS LEGS SYNDROME
     Dosage: ?          QUANTITY:1 TABLET(S);?
     Route: 048
     Dates: start: 20140331, end: 20170331

REACTIONS (6)
  - Economic problem [None]
  - Vomiting [None]
  - Personality change [None]
  - Hyperhidrosis [None]
  - Obsessive-compulsive disorder [None]
  - Nausea [None]
